FAERS Safety Report 20537628 (Version 1)
Quarter: 2022Q1

REPORT INFORMATION
  Report Type: Spontaneous
  Country: US (occurrence: US)
  Receive Date: 20220302
  Receipt Date: 20220302
  Transmission Date: 20220423
  Serious: Yes (Other)
  Sender: FDA-Public Use
  Company Number: US-GLAXOSMITHKLINE-US2022GSK036774

PATIENT
  Sex: Female

DRUGS (8)
  1. ZANTAC [Suspect]
     Active Substance: RANITIDINE HYDROCHLORIDE
     Indication: Gastric bypass
     Dosage: UNK UNK, QD
     Route: 065
     Dates: start: 200001, end: 200412
  2. ZANTAC [Suspect]
     Active Substance: RANITIDINE HYDROCHLORIDE
     Indication: Gastrooesophageal reflux disease
  3. ZANTAC [Suspect]
     Active Substance: RANITIDINE HYDROCHLORIDE
     Indication: Gastric bypass
     Dosage: UNK UNK, QD
     Route: 065
     Dates: start: 200001, end: 200412
  4. ZANTAC [Suspect]
     Active Substance: RANITIDINE HYDROCHLORIDE
     Indication: Gastrooesophageal reflux disease
  5. RANITIDINE [Suspect]
     Active Substance: RANITIDINE
     Indication: Gastric bypass
     Dosage: UNK, QD
     Route: 065
     Dates: start: 200001, end: 200412
  6. RANITIDINE [Suspect]
     Active Substance: RANITIDINE
     Indication: Gastrooesophageal reflux disease
  7. RANITIDINE [Suspect]
     Active Substance: RANITIDINE
     Indication: Gastric bypass
     Dosage: UNK, QD
     Route: 065
     Dates: start: 200001, end: 200412
  8. RANITIDINE [Suspect]
     Active Substance: RANITIDINE
     Indication: Gastrooesophageal reflux disease

REACTIONS (2)
  - Gastric cancer [Unknown]
  - Bladder cancer [Unknown]
